FAERS Safety Report 16266330 (Version 2)
Quarter: 2019Q4

REPORT INFORMATION
  Report Type: Spontaneous
  Country: CA (occurrence: CA)
  Receive Date: 20190502
  Receipt Date: 20191003
  Transmission Date: 20200122
  Serious: Yes (Other)
  Sender: FDA-Public Use
  Company Number: CA-TEVA-2019-CA-1042436

PATIENT
  Sex: Male

DRUGS (13)
  1. ERGOCALCIFEROL. [Concomitant]
     Active Substance: ERGOCALCIFEROL
     Route: 065
  2. AMLODIPINE [Suspect]
     Active Substance: AMLODIPINE BESYLATE
     Indication: PRODUCT USED FOR UNKNOWN INDICATION
     Route: 065
  3. ENBREL [Suspect]
     Active Substance: ETANERCEPT
     Indication: RHEUMATOID ARTHRITIS
     Route: 065
  4. GLICLAZIDE [Concomitant]
     Active Substance: GLICLAZIDE
     Route: 065
  5. METFORMIN [Concomitant]
     Active Substance: METFORMIN HYDROCHLORIDE
     Route: 065
  6. PANTOPRAZOLE [Concomitant]
     Active Substance: PANTOPRAZOLE
     Route: 065
  7. CLOPIDOGREL [Concomitant]
     Active Substance: CLOPIDOGREL BISULFATE
     Route: 065
  8. DICLOFENAC [Concomitant]
     Active Substance: DICLOFENAC
     Route: 065
  9. LEFLUNOMIDE. [Concomitant]
     Active Substance: LEFLUNOMIDE
     Route: 065
  10. ACTEMRA [Suspect]
     Active Substance: TOCILIZUMAB
     Indication: PRODUCT USED FOR UNKNOWN INDICATION
     Dosage: FORM OF ADMIN: NOT SPECIFIED
     Route: 065
  11. ADVAIR HFA [Concomitant]
     Active Substance: FLUTICASONE PROPIONATE\SALMETEROL XINAFOATE
     Route: 065
  12. SALBUTAMOL SULFATE [Concomitant]
     Active Substance: ALBUTEROL SULFATE
     Route: 065
  13. ASAPHEN [Concomitant]
     Active Substance: ASPIRIN
     Route: 065

REACTIONS (3)
  - Arthritis [Not Recovered/Not Resolved]
  - Off label use [Not Recovered/Not Resolved]
  - Drug ineffective [Not Recovered/Not Resolved]
